FAERS Safety Report 7580911-9 (Version None)
Quarter: 2011Q2

REPORT INFORMATION
  Report Type: 
  Country: None (occurrence: None)
  Receive Date: 20110629
  Receipt Date: 20110624
  Transmission Date: 20111010
  Serious: Yes (Disabling, Other)
  Sender: FDA-Public Use
  Company Number: US-MERCK-0805USA00415

PATIENT
  Age: 72 Year
  Sex: Female

DRUGS (2)
  1. FOSAMAX [Suspect]
     Route: 048
     Dates: start: 20020101, end: 20051201
  2. FOSAMAX [Suspect]
     Indication: OSTEOPOROSIS
     Route: 048
     Dates: start: 19970126, end: 20020101

REACTIONS (22)
  - OSTEONECROSIS OF JAW [None]
  - STOMATITIS [None]
  - JAW DISORDER [None]
  - PHARYNGEAL NEOPLASM BENIGN [None]
  - BLOOD CHOLESTEROL INCREASED [None]
  - TOOTH ABSCESS [None]
  - POST HERPETIC NEURALGIA [None]
  - ORAL INFECTION [None]
  - MITRAL VALVE INCOMPETENCE [None]
  - PERIODONTITIS [None]
  - MALAISE [None]
  - ORAL DISORDER [None]
  - ARTHRALGIA [None]
  - HAEMORRHAGE [None]
  - THYROID NEOPLASM [None]
  - GINGIVAL SWELLING [None]
  - OSTEONECROSIS [None]
  - FISTULA [None]
  - NECROSIS [None]
  - HEART RATE IRREGULAR [None]
  - OEDEMA MOUTH [None]
  - HERPES ZOSTER [None]
